FAERS Safety Report 17065648 (Version 1)
Quarter: 2019Q4

REPORT INFORMATION
  Report Type: Spontaneous
  Country: US (occurrence: US)
  Receive Date: 20191122
  Receipt Date: 20191122
  Transmission Date: 20200122
  Serious: Yes (Hospitalization)
  Sender: FDA-Public Use
  Company Number: None

PATIENT
  Age: 78 Year
  Sex: Male

DRUGS (9)
  1. ERIVEDGE [Suspect]
     Active Substance: VISMODEGIB
     Indication: BASAL CELL CARCINOMA
     Route: 048
     Dates: start: 20190507
  2. NITROGLYCER [Concomitant]
  3. AMLODIPINE [Concomitant]
     Active Substance: AMLODIPINE BESYLATE
  4. CODEINE [Concomitant]
     Active Substance: CODEINE
  5. NOVOFINE [Concomitant]
     Active Substance: INSULIN NOS
  6. LEVETIRACETA [Concomitant]
  7. SIMVASTATIN. [Concomitant]
     Active Substance: SIMVASTATIN
  8. LANTUS [Concomitant]
     Active Substance: INSULIN GLARGINE
  9. CELECOXIB. [Concomitant]
     Active Substance: CELECOXIB

REACTIONS (2)
  - Epilepsy [None]
  - Therapy cessation [None]

NARRATIVE: CASE EVENT DATE: 20191119
